FAERS Safety Report 6887698-3 (Version None)
Quarter: 2010Q3

REPORT INFORMATION
  Report Type: 
  Country: None (occurrence: None)
  Receive Date: 20100730
  Receipt Date: 20100721
  Transmission Date: 20110219
  Serious: Yes (Other)
  Sender: FDA-Public Use
  Company Number: JP-ROCHE-671982

PATIENT
  Sex: Male
  Weight: 61 kg

DRUGS (5)
  1. COPEGUS [Suspect]
     Route: 048
     Dates: start: 20090508, end: 20090709
  2. COPEGUS [Suspect]
     Route: 048
     Dates: start: 20090710, end: 20091001
  3. PEGASYS [Suspect]
     Route: 058
     Dates: start: 20090508, end: 20090925
  4. HALCION [Suspect]
     Indication: INSOMNIA
     Route: 048
     Dates: start: 20090619, end: 20091120
  5. DEPAS [Concomitant]
     Route: 048
     Dates: start: 20090619, end: 20091120

REACTIONS (2)
  - IDIOPATHIC THROMBOCYTOPENIC PURPURA [None]
  - INSOMNIA [None]
